FAERS Safety Report 4539911-5 (Version None)
Quarter: 2004Q4

REPORT INFORMATION
  Report Type: 
  Country: None (occurrence: None)
  Receive Date: 20041223
  Receipt Date: 20041214
  Transmission Date: 20050328
  Serious: Yes (Hospitalization)
  Sender: FDA-Public Use
  Company Number: 2004UW25028

PATIENT
  Age: 82 Year
  Sex: Female
  Weight: 88 kg

DRUGS (7)
  1. ARIMIDEX [Suspect]
     Indication: BREAST CANCER
     Dosage: 1 MG DAILY PO
     Route: 048
     Dates: start: 20010101
  2. CELEXA [Concomitant]
  3. TYLENOL [Concomitant]
  4. HYDROCHLOROTHIAZIDE [Concomitant]
  5. SPIRONOLACTONE [Concomitant]
  6. COUMADIN [Concomitant]
  7. HYDREA [Concomitant]

REACTIONS (2)
  - SKIN ULCER [None]
  - VASCULITIS [None]
